FAERS Safety Report 5859265-1 (Version None)
Quarter: 2008Q3

REPORT INFORMATION
  Report Type: 
  Country: None (occurrence: None)
  Receive Date: 20080826
  Receipt Date: 20080826
  Transmission Date: 20090109
  Serious: Yes (Hospitalization)
  Sender: FDA-Public Use
  Company Number: None

PATIENT
  Age: 74 Year
  Sex: Female
  Weight: 63.5036 kg

DRUGS (14)
  1. TEMOZOLOMIDE [Suspect]
     Indication: GLIOBLASTOMA MULTIFORME
     Dosage: 120MG DAILY PO
     Route: 048
     Dates: start: 20080609, end: 20080711
  2. BEVACIZUMAB [Suspect]
     Indication: GLIOBLASTOMA MULTIFORME
     Dosage: 622MG EVERY 14 DAYS IV
     Route: 042
     Dates: start: 20080611
  3. BEVACIZUMAB [Suspect]
     Indication: GLIOBLASTOMA MULTIFORME
     Dosage: 622MG EVERY 14 DAYS IV
     Route: 042
     Dates: start: 20080625
  4. BEVACIZUMAB [Suspect]
     Indication: GLIOBLASTOMA MULTIFORME
     Dosage: 622MG EVERY 14 DAYS IV
     Route: 042
     Dates: start: 20080709
  5. DECADRON SRC [Concomitant]
  6. KEPPRA [Concomitant]
  7. LIPITOR [Concomitant]
  8. XANAX [Concomitant]
  9. ZOFRAN [Concomitant]
  10. NEUPOGEN [Concomitant]
  11. FOSAMAX [Concomitant]
  12. OXYCODONE HCL [Concomitant]
  13. RANITIDINE [Concomitant]
  14. CIPROFLOXACIN [Concomitant]

REACTIONS (5)
  - ANAEMIA [None]
  - CONTUSION [None]
  - NEUTROPENIA [None]
  - PANCYTOPENIA [None]
  - THROMBOCYTOPENIA [None]
